FAERS Safety Report 6429857-X (Version None)
Quarter: 2009Q4

REPORT INFORMATION
  Report Type: 
  Country: None (occurrence: None)
  Receive Date: 20091104
  Receipt Date: 20091104
  Transmission Date: 20100525
  Serious: Yes (Hospitalization)
  Sender: FDA-Public Use
  Company Number: None

PATIENT
  Age: 64 Year
  Sex: Male

DRUGS (1)
  1. TERAZOSIN HCL [Suspect]
     Indication: PROSTATE CANCER
     Dosage: 10 MG HS PO
     Route: 048
     Dates: start: 20030613, end: 20090201

REACTIONS (1)
  - CHEST DISCOMFORT [None]
